FAERS Safety Report 9060726 (Version 1)
Quarter: 2013Q1

REPORT INFORMATION
  Report Type: Report from Study
  Country: US (occurrence: US)
  Receive Date: 20130204
  Receipt Date: 20130204
  Transmission Date: 20140127
  Serious: Yes (Life-Threatening, Hospitalization)
  Sender: FDA-Public Use
  Company Number: US-ASTRAZENECA-2013SE07363

PATIENT
  Age: 36 Year
  Sex: Female
  Weight: 90.7 kg

DRUGS (37)
  1. CRESTOR [Suspect]
     Indication: SEPSIS
     Route: 048
     Dates: start: 20121123
  2. CRESTOR [Suspect]
     Indication: SEPSIS
     Route: 048
     Dates: start: 20121124
  3. AZITHROMYCIN [Concomitant]
     Dates: start: 20121123, end: 20121125
  4. AZTREONAM [Concomitant]
     Dates: start: 20121119, end: 20121123
  5. LEVOFLOXACIN [Concomitant]
     Dates: start: 20121119, end: 20121123
  6. MEROPENEM [Concomitant]
     Dates: start: 20121123, end: 20121125
  7. TMP/SMX [Concomitant]
     Dates: start: 20121123, end: 20121124
  8. VANCOMYCIN [Concomitant]
     Dates: start: 20121120, end: 20121124
  9. ACETAMINOPHEN [Concomitant]
     Dates: start: 20121122, end: 20121125
  10. ALBUTEROL + IPRATROPIUM [Concomitant]
     Dates: start: 20121119, end: 20121121
  11. ALBUTEROL HFA [Concomitant]
     Route: 055
     Dates: start: 20121121, end: 20121124
  12. AMITRIPTYLINE [Concomitant]
     Dates: start: 20121119, end: 20121120
  13. BENZONATATE [Concomitant]
     Dates: start: 20121120, end: 20121121
  14. CALCIUM GLUCONATE [Concomitant]
     Dates: start: 20121124, end: 20121125
  15. DULOXETINE [Concomitant]
     Dates: start: 20121119, end: 20121123
  16. ENOXAPARIN [Concomitant]
     Dates: start: 20121119
  17. ETHACRYNATE [Concomitant]
     Dates: start: 20121120, end: 20121123
  18. FENTANYL [Concomitant]
     Dates: start: 20121121, end: 20121125
  19. FLUTICASONE-SALMETEROL [Concomitant]
     Dates: start: 20121119, end: 20121124
  20. FUROSEMIDE [Concomitant]
     Dates: start: 20121123, end: 20121124
  21. GABAPENTIN [Concomitant]
     Dates: start: 20121120, end: 20121124
  22. HEPARIN [Concomitant]
     Dates: start: 20121121, end: 20121125
  23. HYDROMOPHONE [Concomitant]
     Dates: start: 20121119, end: 20121120
  24. HYDROXYCHLOROQUINE [Concomitant]
     Dates: start: 20121121, end: 20121125
  25. INSULIN ASPART [Concomitant]
     Dates: start: 20121122, end: 20121125
  26. IPRATROPIUM BROMIDE [Concomitant]
     Dates: start: 20121121, end: 20121125
  27. IRON SUCROSE [Concomitant]
     Dates: start: 20121121
  28. POTASSIUM CHLORIDE [Concomitant]
     Dates: start: 20121121, end: 20121125
  29. LAMOTRIGINE [Concomitant]
     Dates: start: 20121119, end: 20121125
  30. LIDOCAINE [Concomitant]
     Dates: start: 20121119, end: 20121120
  31. LORAZEPAM [Concomitant]
     Dates: start: 20121120, end: 20121121
  32. METHYLPREDNISONE [Concomitant]
     Dates: start: 20121120, end: 20121125
  33. NIFEDIPIN [Concomitant]
     Dates: start: 20121120, end: 20121121
  34. OLANZAPINE [Concomitant]
     Dates: start: 20121122, end: 20121124
  35. OMEPRAZOLE [Concomitant]
     Dates: start: 20121120, end: 20121125
  36. ONDASETRON [Concomitant]
     Dates: start: 20121123
  37. PROPOFOL [Concomitant]
     Dates: start: 20121121

REACTIONS (1)
  - Hyperpyrexia [Not Recovered/Not Resolved]
